FAERS Safety Report 6755941-7 (Version None)
Quarter: 2010Q2

REPORT INFORMATION
  Report Type: 
  Country: None (occurrence: None)
  Receive Date: 20100604
  Receipt Date: 20100514
  Transmission Date: 20101027
  Serious: Yes (Hospitalization, Other)
  Sender: FDA-Public Use
  Company Number: PHHY2010CN32124

PATIENT
  Age: 40 Year
  Sex: Female

DRUGS (1)
  1. KETOTIFEN FUMARATE [Suspect]
     Indication: PRURIGO
     Dosage: 1 MG, BID

REACTIONS (14)
  - ACANTHOSIS [None]
  - CAESAREAN SECTION [None]
  - DRUG EXPOSURE DURING PREGNANCY [None]
  - DRUG INEFFECTIVE [None]
  - HYPERKERATOSIS [None]
  - LYMPHOCYTIC INFILTRATION [None]
  - PARAKERATOSIS [None]
  - PREMATURE LABOUR [None]
  - PRURIGO [None]
  - PRURITUS [None]
  - RASH [None]
  - RASH PAPULAR [None]
  - SCRATCH [None]
  - SKIN HYPERPIGMENTATION [None]
